FAERS Safety Report 6978872-6 (Version None)
Quarter: 2010Q3

REPORT INFORMATION
  Report Type: 
  Country: None (occurrence: None)
  Receive Date: 20100913
  Receipt Date: 20100902
  Transmission Date: 20110219
  Serious: Yes (Other)
  Sender: FDA-Public Use
  Company Number: US-ASTRAZENECA-2010SE41560

PATIENT
  Age: 13 Year
  Sex: Male

DRUGS (2)
  1. SEROQUEL [Suspect]
     Indication: MAJOR DEPRESSION
     Route: 048
     Dates: start: 20091211, end: 20100830
  2. CONCERTA [Concomitant]
     Route: 048
     Dates: start: 20060101

REACTIONS (3)
  - CATARACT [None]
  - DRUG DOSE OMISSION [None]
  - SUICIDAL BEHAVIOUR [None]
